FAERS Safety Report 5121675-8 (Version None)
Quarter: 2006Q4

REPORT INFORMATION
  Report Type: 
  Country: None (occurrence: None)
  Receive Date: 20061006
  Receipt Date: 20050823
  Transmission Date: 20070319
  Serious: Yes (Other)
  Sender: FDA-Public Use
  Company Number: US-GLAXOSMITHKLINE-A0571518A

PATIENT
  Age: 28 Year
  Sex: Male
  Weight: 168.2 kg

DRUGS (3)
  1. LAMICTAL [Suspect]
     Indication: AFFECTIVE DISORDER
     Dosage: 50MG PER DAY
     Route: 048
     Dates: start: 20050718, end: 20050801
  2. WELLBUTRIN XL [Suspect]
     Indication: DRUG USE FOR UNKNOWN INDICATION
     Dosage: 300MG IN THE MORNING
     Route: 048
     Dates: start: 20050620, end: 20050101
  3. EFFEXOR XR [Concomitant]
     Dosage: 150MG IN THE MORNING
     Route: 048
     Dates: start: 20050620, end: 20051024

REACTIONS (4)
  - CONVULSION [None]
  - RASH [None]
  - SCAR [None]
  - SKIN ULCER [None]
